FAERS Safety Report 6482114-8 (Version None)
Quarter: 2009Q4

REPORT INFORMATION
  Report Type: 
  Country: None (occurrence: None)
  Receive Date: 20091208
  Receipt Date: 20090406
  Transmission Date: 20100525
  Serious: No
  Sender: FDA-Public Use
  Company Number: US-AMGEN-KDL341890

PATIENT
  Sex: Male

DRUGS (1)
  1. ENBREL [Suspect]
     Indication: PSORIASIS
     Route: 058
     Dates: start: 20090326

REACTIONS (5)
  - AGITATION [None]
  - ANXIETY [None]
  - IRRITABILITY [None]
  - RESTLESSNESS [None]
  - STRESS [None]
